FAERS Safety Report 6601043-X (Version None)
Quarter: 2010Q1

REPORT INFORMATION
  Report Type: 
  Country: None (occurrence: None)
  Receive Date: 20100225
  Receipt Date: 20100217
  Transmission Date: 20100710
  Serious: Yes (Other)
  Sender: FDA-Public Use
  Company Number: US-JNJFOC-20100208769

PATIENT
  Sex: Male
  Weight: 81.65 kg

DRUGS (6)
  1. FENTANYL CITRATE [Suspect]
     Indication: ARTHRALGIA
     Route: 062
  2. FENTANYL-100 [Suspect]
     Indication: ARTHRALGIA
     Route: 062
  3. METFORMIN HCL [Concomitant]
     Indication: DIABETES MELLITUS
     Route: 048
  4. XANAX [Concomitant]
     Indication: ANXIETY
     Route: 048
  5. LANTUS [Concomitant]
     Indication: DIABETES MELLITUS
     Dosage: 30 UNIT EVERY OTHER DAY
     Route: 058
  6. BYETTA [Concomitant]
     Indication: DIABETES MELLITUS
     Route: 058

REACTIONS (4)
  - DEPRESSION [None]
  - DRUG EFFECT DECREASED [None]
  - INAPPROPRIATE SCHEDULE OF DRUG ADMINISTRATION [None]
  - NEUROPATHY PERIPHERAL [None]
